FAERS Safety Report 8168238 (Version 5)
Quarter: 2012Q4

REPORT INFORMATION
  Report Type: 
  Country: US (occurrence: US)
  Receive Date: 20111004
  Receipt Date: 20120927
  Transmission Date: 20130627
  Serious: Yes (Hospitalization, Other)
  Sender: FDA-Public Use
  Company Number: US-BAYER-2011-091238

PATIENT
  Age: 24 Year
  Sex: Female
  Weight: 60.32 kg

DRUGS (9)
  1. YASMIN [Suspect]
     Indication: CONTRACEPTION
     Dosage: UNK
     Dates: start: 20060405, end: 20060426
  2. DECADRON [Concomitant]
     Indication: PAIN
     Dosage: UNK
  3. AZITHROMYCIN [Concomitant]
     Dosage: 250 mg, UNK
  4. ADVAIR [Concomitant]
     Dosage: 250/50 1 tablet BID
     Route: 048
  5. ALBUTEROL [Concomitant]
     Dosage: 2 puff(s), Q1HR
  6. ZYRTEC [Concomitant]
  7. HYDROCODONE [Concomitant]
  8. VICERIL [Concomitant]
  9. TALWIN [Concomitant]

REACTIONS (18)
  - Intracranial venous sinus thrombosis [None]
  - Cerebrovascular accident [None]
  - Deep vein thrombosis [None]
  - General physical health deterioration [None]
  - Grand mal convulsion [None]
  - Pain [None]
  - Emotional distress [None]
  - Anxiety [None]
  - Anhedonia [None]
  - Anxiety [None]
  - Headache [None]
  - Vomiting [None]
  - Photophobia [None]
  - Migraine [None]
  - Loss of consciousness [None]
  - Hypoaesthesia [None]
  - Dysstasia [None]
  - High risk pregnancy [None]
